FAERS Safety Report 17374382 (Version 1)
Quarter: 2020Q1

REPORT INFORMATION
  Report Type: Spontaneous
  Country: US (occurrence: US)
  Receive Date: 20200205
  Receipt Date: 20200205
  Transmission Date: 20200409
  Serious: No
  Sender: FDA-Public Use
  Company Number: US-PFIZER INC-2020049767

PATIENT
  Sex: Female

DRUGS (1)
  1. ATORVASTATIN CALCIUM. [Suspect]
     Active Substance: ATORVASTATIN CALCIUM
     Dosage: UNK

REACTIONS (7)
  - Product size issue [Unknown]
  - Low density lipoprotein increased [Unknown]
  - Pain [Unknown]
  - Blood calcium increased [Unknown]
  - Product shape issue [Unknown]
  - Discomfort [Unknown]
  - Poor quality product administered [Unknown]
